FAERS Safety Report 24766319 (Version 1)
Quarter: 2024Q4

REPORT INFORMATION
  Report Type: Spontaneous
  Country: DE (occurrence: DE)
  Receive Date: 20241223
  Receipt Date: 20241223
  Transmission Date: 20250114
  Serious: Yes (Hospitalization)
  Sender: PFIZER
  Company Number: DE-PFIZER INC-202400327898

PATIENT
  Age: 29 Year
  Sex: Female

DRUGS (1)
  1. DINOPROSTONE [Suspect]
     Active Substance: DINOPROSTONE
     Indication: Labour induction
     Dosage: 2MG - 0 - 1MG
     Dates: start: 20241123, end: 20241124

REACTIONS (3)
  - Vulvovaginal erythema [Recovered/Resolved]
  - Vaginal oedema [Recovered/Resolved]
  - Vulvovaginal pain [Recovered/Resolved]

NARRATIVE: CASE EVENT DATE: 20241124
